FAERS Safety Report 5885181-5 (Version None)
Quarter: 2008Q3

REPORT INFORMATION
  Report Type: 
  Country: None (occurrence: None)
  Receive Date: 20080916
  Receipt Date: 20080908
  Transmission Date: 20090109
  Serious: Yes (Hospitalization, Other)
  Sender: FDA-Public Use
  Company Number: US-AMGEN-QUU306420

PATIENT
  Sex: Female

DRUGS (2)
  1. ENBREL [Suspect]
     Indication: PSORIASIS
     Route: 058
  2. ENBREL [Suspect]
     Indication: ARTHRITIS

REACTIONS (7)
  - FEMORAL ARTERY OCCLUSION [None]
  - INCREASED TENDENCY TO BRUISE [None]
  - KIDNEY SMALL [None]
  - MUSCULOSKELETAL PAIN [None]
  - POST PROCEDURAL COMPLICATION [None]
  - PSORIASIS [None]
  - RENAL FAILURE [None]
